FAERS Safety Report 6467976-2 (Version None)
Quarter: 2009Q4

REPORT INFORMATION
  Report Type: 
  Country: None (occurrence: None)
  Receive Date: 20091127
  Receipt Date: 20091109
  Transmission Date: 20100525
  Serious: Yes (Other)
  Sender: FDA-Public Use
  Company Number: PHHY2009JP47228

PATIENT
  Age: 60 Year
  Sex: Male

DRUGS (2)
  1. VISUDYNE [Suspect]
     Indication: MACULAR DEGENERATION
     Dates: start: 20080101
  2. VISUDYNE [Suspect]
     Indication: MACULAR DEGENERATION

REACTIONS (7)
  - DISEASE PROGRESSION [None]
  - MACULAR DEGENERATION [None]
  - RETINAL ARTERY OCCLUSION [None]
  - RETINAL INFARCTION [None]
  - RETINAL OEDEMA [None]
  - RETINAL VEIN OCCLUSION [None]
  - VISUAL ACUITY REDUCED [None]
